FAERS Safety Report 21824203 (Version 1)
Quarter: 2023Q1

REPORT INFORMATION
  Report Type: Spontaneous
  Country: NL (occurrence: NL)
  Receive Date: 20230105
  Receipt Date: 20230105
  Transmission Date: 20230417
  Serious: Yes (Death, Other)
  Sender: FDA-Public Use
  Company Number: NL-AMGEN-NLDSP2022226331

PATIENT

DRUGS (4)
  1. BEVACIZUMAB [Suspect]
     Active Substance: BEVACIZUMAB
     Indication: Glioma
     Dosage: 10 MILLIGRAM/KILOGRAM, Q2WK
     Route: 065
  2. BEVACIZUMAB [Suspect]
     Active Substance: BEVACIZUMAB
     Indication: Off label use
  3. IRINOTECAN [Concomitant]
     Active Substance: IRINOTECAN
     Indication: Glioma
     Dosage: 125 MILLIGRAM/SQ. METER, Q2WK
  4. VINBLASTINE [Concomitant]
     Active Substance: VINBLASTINE
     Indication: Glioma
     Dosage: UNK UNK, Q2WK

REACTIONS (14)
  - Glioma [Fatal]
  - Gastric haemorrhage [Recovered/Resolved]
  - Pneumonia [Recovered/Resolved]
  - Off label use [Unknown]
  - Colitis [Recovered/Resolved]
  - Visual acuity reduced [Recovered/Resolved]
  - Therapy partial responder [Unknown]
  - Hypertension [Recovered/Resolved]
  - Proteinuria [Recovered/Resolved]
  - Abdominal pain [Recovered/Resolved]
  - Neutrophil count decreased [Recovered/Resolved]
  - Hypersensitivity [Unknown]
  - Nausea [Recovered/Resolved]
  - Fatigue [Recovered/Resolved]
